FAERS Safety Report 5220179-1 (Version None)
Quarter: 2007Q1

REPORT INFORMATION
  Report Type: 
  Country: None (occurrence: None)
  Receive Date: 20061201
  Receipt Date: 20060927
  Transmission Date: 20070707
  Serious: Yes (Other)
  Sender: FDA-Public Use
  Company Number: PHEH2006US12277

PATIENT
  Age: 36 Year
  Sex: Female

DRUGS (1)
  1. LAMISIL [Suspect]
     Indication: NAIL TINEA
     Dosage: 250 MG QD ORAL
     Route: 048
     Dates: start: 20060814, end: 20060926

REACTIONS (2)
  - AGEUSIA [None]
  - URTICARIA [None]
